FAERS Safety Report 13570324 (Version 4)
Quarter: 2018Q2

REPORT INFORMATION
  Report Type: Report from Study
  Country: JP (occurrence: JP)
  Receive Date: 20170522
  Receipt Date: 20180626
  Transmission Date: 20180711
  Serious: Yes (Death)
  Sender: FDA-Public Use
  Company Number: JP-DSJP-DSJ-2017-115102

PATIENT

DRUGS (3)
  1. EDOXABAN [Suspect]
     Active Substance: EDOXABAN TOSYLATE
     Indication: ATRIAL FIBRILLATION
     Dosage: 30 MG, QD
     Route: 048
     Dates: start: 20161220, end: 20170208
  2. CASODEX [Concomitant]
     Active Substance: BICALUTAMIDE
     Dosage: 80MG/DAY
     Route: 048
  3. PRAZAXA [Concomitant]
     Active Substance: DABIGATRAN ETEXILATE MESYLATE
     Dosage: 220MG/DAY
     Route: 048
     Dates: end: 20161219

REACTIONS (1)
  - Death [Fatal]

NARRATIVE: CASE EVENT DATE: 20170208
